FAERS Safety Report 16532566 (Version 1)
Quarter: 2019Q3

REPORT INFORMATION
  Report Type: Spontaneous
  Country: US (occurrence: US)
  Receive Date: 20190703
  Receipt Date: 20190703
  Transmission Date: 20191004
  Serious: Yes (Other)
  Sender: FDA-Public Use
  Company Number: None

PATIENT
  Age: 70 Year
  Sex: Female
  Weight: 71.91 kg

DRUGS (6)
  1. IBRANCE [Concomitant]
     Active Substance: PALBOCICLIB
  2. ONDANSETRON [Concomitant]
     Active Substance: ONDANSETRON
  3. BEVACIZUMAB. [Concomitant]
     Active Substance: BEVACIZUMAB
  4. GABAPENTIN. [Concomitant]
     Active Substance: GABAPENTIN
  5. DOCETAXEL. [Concomitant]
     Active Substance: DOCETAXEL
  6. CAPECITABINE. [Suspect]
     Active Substance: CAPECITABINE
     Indication: BREAST CANCER
     Route: 048
     Dates: start: 20190308, end: 20190703

REACTIONS (1)
  - Disease progression [None]

NARRATIVE: CASE EVENT DATE: 20190703
